FAERS Safety Report 9359405 (Version 1)
Quarter: 2013Q2

REPORT INFORMATION
  Report Type: Spontaneous
  Country: US (occurrence: US)
  Receive Date: 20130620
  Receipt Date: 20130620
  Transmission Date: 20140414
  Serious: No
  Sender: FDA-Public Use
  Company Number: US-US-EMD SERONO, INC.-7063891

PATIENT
  Sex: Female
  Weight: 64 kg

DRUGS (3)
  1. REBIF [Suspect]
     Indication: PRODUCT USED FOR UNKNOWN INDICATION
     Route: 058
     Dates: start: 20060615, end: 201103
  2. REBIF [Suspect]
     Route: 058
     Dates: start: 201103
  3. TYLENOL XS [Concomitant]
     Indication: PREMEDICATION

REACTIONS (7)
  - Central nervous system lesion [Not Recovered/Not Resolved]
  - Nausea [Recovered/Resolved]
  - Computerised tomogram abnormal [Recovered/Resolved]
  - Weight decreased [Unknown]
  - Pollakiuria [Unknown]
  - Thyroid disorder [Recovering/Resolving]
  - Injection site rash [Unknown]
